FAERS Safety Report 7356602-6 (Version None)
Quarter: 2011Q1

REPORT INFORMATION
  Report Type: 
  Country: None (occurrence: None)
  Receive Date: 20110316
  Receipt Date: 20110303
  Transmission Date: 20110831
  Serious: Yes (Hospitalization)
  Sender: FDA-Public Use
  Company Number: PHHY2011US17859

PATIENT
  Sex: Male
  Weight: 80 kg

DRUGS (5)
  1. PERCOCET [Concomitant]
  2. ASPIRIN [Concomitant]
  3. METHADON HCL TAB [Concomitant]
  4. FOLIC ACID [Concomitant]
  5. EXJADE [Suspect]
     Indication: SICKLE CELL ANAEMIA
     Dosage: 2000 MG, DAILY
     Route: 048

REACTIONS (1)
  - FLUID RETENTION [None]
